FAERS Safety Report 5290556-1 (Version None)
Quarter: 2007Q2

REPORT INFORMATION
  Report Type: 
  Country: None (occurrence: None)
  Receive Date: 20070405
  Receipt Date: 20070405
  Transmission Date: 20071010
  Serious: Yes (Other)
  Sender: FDA-Public Use
  Company Number: None

PATIENT
  Sex: Female
  Weight: 56.6996 kg

DRUGS (6)
  1. M.V.I. ADULT [Suspect]
     Indication: MALNUTRITION
     Dosage: 10 ML I.V. IN DEXTROSE
     Route: 042
     Dates: start: 20070327
  2. M.V.I. ADULT [Suspect]
     Indication: PREGNANCY
     Dosage: 10 ML I.V. IN DEXTROSE
     Route: 042
     Dates: start: 20070327
  3. M.V.I. ADULT [Suspect]
     Indication: VOMITING
     Dosage: 10 ML I.V. IN DEXTROSE
     Route: 042
     Dates: start: 20070327
  4. FOLIC ACID [Suspect]
     Indication: MALNUTRITION
     Dosage: 400 MCG IN PPN OVER 24 HOURS
     Dates: start: 20070403
  5. FOLIC ACID [Suspect]
     Indication: PREGNANCY
     Dosage: 400 MCG IN PPN OVER 24 HOURS
     Dates: start: 20070403
  6. FOLIC ACID [Suspect]
     Indication: VOMITING
     Dosage: 400 MCG IN PPN OVER 24 HOURS
     Dates: start: 20070403

REACTIONS (3)
  - ANAPHYLACTIC REACTION [None]
  - CHEST DISCOMFORT [None]
  - RASH [None]
